FAERS Safety Report 9639978 (Version 3)
Quarter: 2013Q4

REPORT INFORMATION
  Report Type: Spontaneous
  Country: GB (occurrence: GB)
  Receive Date: 20131023
  Receipt Date: 20131205
  Transmission Date: 20140711
  Serious: Yes (Hospitalization)
  Sender: FDA-Public Use
  Company Number: GB-MPIJNJ-2013JNJ000668

PATIENT
  Sex: 0

DRUGS (14)
  1. VELCADE [Suspect]
     Indication: PLASMA CELL MYELOMA
     Dosage: 0.7 MG/M2, UNK
     Route: 058
     Dates: start: 20130611, end: 20130823
  2. DEXAMETHASONE [Suspect]
     Indication: PLASMA CELL MYELOMA
     Dosage: 20 MG, UNK
     Route: 048
     Dates: start: 20130611, end: 20130824
  3. CITALOPRAM [Concomitant]
     Indication: DEPRESSION
     Dosage: UNK
     Dates: start: 20090303
  4. FINASTERIDE [Concomitant]
     Indication: PROSTATOMEGALY
     Dosage: UNK
     Dates: start: 199605
  5. NICORANDIL [Concomitant]
     Indication: ANGINA PECTORIS
     Dosage: UNK
     Dates: start: 1997
  6. OMEPRAZOLE [Concomitant]
     Indication: DYSPEPSIA
     Dosage: UNK
     Dates: start: 20100805
  7. SODIUM CLODRONATE [Concomitant]
     Indication: PLASMA CELL MYELOMA
     Dosage: UNK
     Dates: start: 20110830
  8. WARFARIN [Concomitant]
     Indication: ANTICOAGULATION DRUG LEVEL THERAPEUTIC
     Dosage: UNK
     Dates: start: 20041229, end: 20130812
  9. GLYCERYL TRINITRATE [Concomitant]
     Indication: ANGINA PECTORIS
     Dosage: UNK
     Dates: start: 1997
  10. ACICLOVIR [Concomitant]
     Indication: ANTIVIRAL PROPHYLAXIS
     Dosage: UNK
     Dates: start: 20130611
  11. CO-TRIMOXAZOLE [Concomitant]
     Indication: PROPHYLAXIS
     Dosage: UNK
     Dates: start: 20130612
  12. LACRI-LUBE [Concomitant]
     Indication: DRY EYE
     Dosage: UNK
     Dates: start: 20121221
  13. FLUCLOXACILLIN [Concomitant]
  14. ACETYLSALICYLIC ACID [Concomitant]

REACTIONS (2)
  - Fall [Recovering/Resolving]
  - Humerus fracture [Recovering/Resolving]
